FAERS Safety Report 4291659-0 (Version None)
Quarter: 2004Q1

REPORT INFORMATION
  Report Type: 
  Country: None (occurrence: None)
  Receive Date: 20040211
  Receipt Date: 20031223
  Transmission Date: 20041129
  Serious: No
  Sender: FDA-Public Use
  Company Number: US-GLAXOSMITHKLINE-A0444116A

PATIENT
  Age: 41 Year
  Sex: Female
  Weight: 54.5 kg

DRUGS (4)
  1. IMITREX [Suspect]
     Indication: MIGRAINE
     Route: 058
     Dates: start: 20031101
  2. IMITREX [Suspect]
     Route: 048
     Dates: start: 20031101
  3. AMITRIPTYLINE HCL [Concomitant]
  4. ERGIX [Concomitant]

REACTIONS (1)
  - CHEST PAIN [None]
